FAERS Safety Report 21036159 (Version 1)
Quarter: 2022Q3

REPORT INFORMATION
  Report Type: Spontaneous
  Country: US (occurrence: US)
  Receive Date: 20220701
  Receipt Date: 20220701
  Transmission Date: 20221026
  Serious: No
  Sender: FDA-Public Use
  Company Number: US-THERAPEUTICSMD-2021TMD02215

PATIENT
  Sex: Female
  Weight: 61.224 kg

DRUGS (2)
  1. IMVEXXY [Suspect]
     Active Substance: ESTRADIOL
     Indication: Dyspareunia
     Dosage: 10 ?G, 2X/WEEK
     Route: 067
     Dates: start: 2019
  2. ALL KINDS OF MEDICATIONS [Concomitant]

REACTIONS (4)
  - Vulvovaginal discomfort [Recovering/Resolving]
  - Vaginal mucosal blistering [Recovering/Resolving]
  - Vulvovaginal injury [Recovering/Resolving]
  - Vulvovaginal pain [Recovering/Resolving]
